FAERS Safety Report 7897347-3 (Version None)
Quarter: 2011Q4

REPORT INFORMATION
  Report Type: 
  Country: None (occurrence: None)
  Receive Date: 20111107
  Receipt Date: 20111028
  Transmission Date: 20120403
  Serious: Yes (Death, Other)
  Sender: FDA-Public Use
  Company Number: EG-GENZYME-CERZ-1001705

PATIENT

DRUGS (2)
  1. CEREZYME [Suspect]
     Dosage: 60 U/KG, Q2W
     Route: 042
     Dates: start: 20000125, end: 20101130
  2. CEREZYME [Suspect]
     Indication: GAUCHER'S DISEASE
     Dosage: 20 U/KG, Q2W
     Route: 042
     Dates: start: 20080601

REACTIONS (2)
  - CLONIC CONVULSION [None]
  - DISEASE PROGRESSION [None]
